FAERS Safety Report 7475649-2 (Version None)
Quarter: 2011Q2

REPORT INFORMATION
  Report Type: 
  Country: None (occurrence: None)
  Receive Date: 20110504
  Receipt Date: 20110421
  Transmission Date: 20111010
  Serious: Yes (Other)
  Sender: FDA-Public Use
  Company Number: 031493

PATIENT
  Sex: Female

DRUGS (1)
  1. VIMPAT [Suspect]

REACTIONS (1)
  - HALLUCINATION [None]
